FAERS Safety Report 16869537 (Version 3)
Quarter: 2019Q4

REPORT INFORMATION
  Report Type: Spontaneous
  Country: US (occurrence: US)
  Receive Date: 20190930
  Receipt Date: 20191025
  Transmission Date: 20200122
  Serious: Yes (Hospitalization)
  Sender: FDA-Public Use
  Company Number: US-ASTRAZENECA-2019SF37497

PATIENT
  Age: 74 Year
  Sex: Female

DRUGS (2)
  1. INSULIN [Concomitant]
     Active Substance: INSULIN NOS
  2. BYDUREON BCISE [Suspect]
     Active Substance: EXENATIDE
     Indication: TYPE 2 DIABETES MELLITUS
     Route: 058
     Dates: start: 2018

REACTIONS (13)
  - Pneumonia [Recovering/Resolving]
  - Cough [Recovering/Resolving]
  - Injection site pain [Recovered/Resolved]
  - Product dose omission [Recovered/Resolved]
  - Wheezing [Recovering/Resolving]
  - Dyspnoea [Unknown]
  - Malaise [Recovering/Resolving]
  - Asthma [Unknown]
  - Hypersensitivity [Unknown]
  - Visual impairment [Not Recovered/Not Resolved]
  - Device issue [Unknown]
  - Injection site haemorrhage [Recovered/Resolved]
  - Incorrect dose administered by device [Unknown]

NARRATIVE: CASE EVENT DATE: 2018
